FAERS Safety Report 6020201-9 (Version None)
Quarter: 2008Q4

REPORT INFORMATION
  Report Type: 
  Country: None (occurrence: None)
  Receive Date: 20081223
  Receipt Date: 20081223
  Transmission Date: 20090506
  Serious: Yes (Life-Threatening, Other)
  Sender: FDA-Public Use
  Company Number: None

PATIENT
  Age: 34 Year
  Sex: Male
  Weight: 79.3795 kg

DRUGS (2)
  1. PROAIR HFA [Suspect]
     Indication: ASTHMA
     Dosage: 80MCG 2 TO 4 PUFFS DAILY PO
     Route: 048
     Dates: start: 20081214, end: 20081215
  2. PROVENTIL-HFA [Suspect]
     Indication: ASTHMA
     Dosage: 80MCG 2 TO 4 PUFFS DAILY PO
     Route: 048
     Dates: start: 20081214, end: 20081215

REACTIONS (1)
  - DRUG INEFFECTIVE [None]
